FAERS Safety Report 18521908 (Version 2)
Quarter: 2020Q4

REPORT INFORMATION
  Report Type: Spontaneous
  Country: JP (occurrence: JP)
  Receive Date: 20201119
  Receipt Date: 20201230
  Transmission Date: 20210114
  Serious: Yes (Other)
  Sender: FDA-Public Use
  Company Number: NVSJ2020JP012155

PATIENT
  Age: 72 Year
  Sex: Male

DRUGS (1)
  1. BEOVU [Suspect]
     Active Substance: BROLUCIZUMAB-DBLL
     Indication: POLYPOIDAL CHOROIDAL VASCULOPATHY
     Dosage: 6 MG
     Route: 031
     Dates: start: 20200806, end: 20200806

REACTIONS (11)
  - Anterior chamber cell [Unknown]
  - Uveitis [Recovered/Resolved]
  - Keratic precipitates [Unknown]
  - Detachment of retinal pigment epithelium [Unknown]
  - Iritis [Recovering/Resolving]
  - Subretinal fluid [Unknown]
  - Vitreous floaters [Unknown]
  - Vitreal cells [Unknown]
  - Vitreous opacities [Unknown]
  - Product use in unapproved indication [Unknown]
  - Visual acuity reduced [Recovering/Resolving]

NARRATIVE: CASE EVENT DATE: 20201022
